FAERS Safety Report 16252087 (Version 2)
Quarter: 2019Q3

REPORT INFORMATION
  Report Type: Spontaneous
  Country: US (occurrence: US)
  Receive Date: 20190429
  Receipt Date: 20190710
  Transmission Date: 20191004
  Serious: No
  Sender: FDA-Public Use
  Company Number: US-TEVA-2019-US-1040434

PATIENT
  Sex: Female

DRUGS (13)
  1. COREG CR [Concomitant]
     Active Substance: CARVEDILOL PHOSPHATE
  2. ATORVASTATIN [Concomitant]
     Active Substance: ATORVASTATIN
  3. DYMISTA [Concomitant]
     Active Substance: AZELASTINE HYDROCHLORIDE\FLUTICASONE PROPIONATE
  4. AMLODIPINE [Concomitant]
     Active Substance: AMLODIPINE BESYLATE
  5. PROLIA [Concomitant]
     Active Substance: DENOSUMAB
  6. LISINOPRIL. [Concomitant]
     Active Substance: LISINOPRIL
  7. ZYRTEC [Concomitant]
     Active Substance: CETIRIZINE HYDROCHLORIDE
  8. MONTELUKAST [Concomitant]
     Active Substance: MONTELUKAST SODIUM
  9. NEXIUM [Concomitant]
     Active Substance: ESOMEPRAZOLE MAGNESIUM
  10. MYRBETRIQ [Concomitant]
     Active Substance: MIRABEGRON
  11. QVAR REDIHALER [Suspect]
     Active Substance: BECLOMETHASONE DIPROPIONATE
     Dosage: 2 PUFFS IN MORNING AND 2 PUFFS IN EVENING
     Route: 055
     Dates: end: 20190514
  12. ALBUTEROL/IPRATROPIUM [Concomitant]
     Active Substance: ALBUTEROL\IPRATROPIUM
  13. BABY ASPRIN [Concomitant]
     Active Substance: ASPIRIN

REACTIONS (3)
  - Drug ineffective [Unknown]
  - Product dispensing issue [Unknown]
  - Candida infection [Recovered/Resolved]
